FAERS Safety Report 8567365-0 (Version None)
Quarter: 2012Q3

REPORT INFORMATION
  Report Type: 
  Country: None (occurrence: None)
  Receive Date: 20120803
  Receipt Date: 20120730
  Transmission Date: 20120928
  Serious: Yes (Other)
  Sender: FDA-Public Use
  Company Number: PHHY2012AU061699

PATIENT
  Sex: Male
  Weight: 95 kg

DRUGS (2)
  1. SERETIDE [Suspect]
     Indication: CHRONIC OBSTRUCTIVE PULMONARY DISEASE
     Dates: start: 20120620
  2. ONBREZ [Suspect]
     Indication: CHRONIC OBSTRUCTIVE PULMONARY DISEASE
     Dates: start: 20120620, end: 20120715

REACTIONS (8)
  - BLISTER [None]
  - PAIN [None]
  - HEADACHE [None]
  - PRURITUS [None]
  - MALAISE [None]
  - DERMATITIS INFECTED [None]
  - ARTHRALGIA [None]
  - ERYTHEMA [None]
